FAERS Safety Report 5572196-X (Version None)
Quarter: 2007Q4

REPORT INFORMATION
  Report Type: 
  Country: None (occurrence: None)
  Receive Date: 20071221
  Receipt Date: 20071211
  Transmission Date: 20080405
  Serious: Yes (Hospitalization, Other)
  Sender: FDA-Public Use
  Company Number: KE-GILEAD-2007-0011196

PATIENT
  Sex: Female
  Weight: 64 kg

DRUGS (6)
  1. EMTRICITABINE/TENOFOVIR DISOPROXIL FUMARATE [Suspect]
     Indication: HIV INFECTION
     Route: 048
     Dates: start: 20060718
  2. KALETRA [Suspect]
     Indication: HIV INFECTION
     Route: 048
     Dates: start: 20060718
  3. VITACAP [Concomitant]
     Route: 048
  4. SEPTRIN [Concomitant]
     Dates: start: 20060704, end: 20070109
  5. ACYCLOVIR [Concomitant]
     Dates: start: 20061006
  6. LOSEC [Concomitant]
     Dates: start: 20060913

REACTIONS (3)
  - ABORTION SPONTANEOUS [None]
  - BLIGHTED OVUM [None]
  - DEEP VEIN THROMBOSIS [None]
